FAERS Safety Report 24168683 (Version 1)
Quarter: 2024Q3

REPORT INFORMATION
  Report Type: Spontaneous
  Country: US (occurrence: US)
  Receive Date: 20240802
  Receipt Date: 20240802
  Transmission Date: 20241017
  Serious: Yes (Hospitalization, Other)
  Sender: HIKMA
  Company Number: US-MLMSERVICE-20240419-PI033374-00145-1

PATIENT
  Age: 40 Year
  Sex: Male

DRUGS (2)
  1. FENTANYL [Suspect]
     Active Substance: FENTANYL\FENTANYL CITRATE
     Dosage: UNK
     Route: 042
  2. FENTANYL [Suspect]
     Active Substance: FENTANYL\FENTANYL CITRATE
     Indication: Product used for unknown indication
     Dosage: UNK
     Route: 058

REACTIONS (7)
  - End stage renal disease [Unknown]
  - Streptococcal infection [Unknown]
  - Gastrointestinal amyloidosis [Unknown]
  - Secondary amyloidosis [Unknown]
  - Renal amyloidosis [Unknown]
  - Infectious pleural effusion [Unknown]
  - Drug abuse [Unknown]
